FAERS Safety Report 18575355 (Version 1)
Quarter: 2020Q4

REPORT INFORMATION
  Report Type: Spontaneous
  Country: FR (occurrence: FR)
  Receive Date: 20201203
  Receipt Date: 20201203
  Transmission Date: 20210114
  Serious: Yes (Hospitalization, Other)
  Sender: FDA-Public Use
  Company Number: FR-PFIZER INC-2020468589

PATIENT
  Sex: Male
  Weight: 3.05 kg

DRUGS (1)
  1. EFFEXOR [Suspect]
     Active Substance: VENLAFAXINE HYDROCHLORIDE
     Indication: PERINATAL DEPRESSION
     Dosage: 1 DF, 1X/DAY
     Route: 064
     Dates: start: 20190723, end: 20200331

REACTIONS (4)
  - Maternal exposure during pregnancy [Unknown]
  - Neonatal respiratory distress [Recovered/Resolved]
  - Hypoventilation neonatal [Recovered/Resolved]
  - Cyanosis neonatal [Recovered/Resolved]

NARRATIVE: CASE EVENT DATE: 20200331
